FAERS Safety Report 18908411 (Version 3)
Quarter: 2022Q3

REPORT INFORMATION
  Report Type: Report from Study
  Country: JP (occurrence: JP)
  Receive Date: 20210218
  Receipt Date: 20220829
  Transmission Date: 20221027
  Serious: Yes (Other)
  Sender: FDA-Public Use
  Company Number: JP-KYOWAKIRIN-2021AKK002203

PATIENT
  Age: 77 Year
  Sex: Female

DRUGS (40)
  1. DARBEPOETIN ALFA [Suspect]
     Active Substance: DARBEPOETIN ALFA
     Indication: Myelodysplastic syndrome
     Dosage: 120 MILLIGRAM
     Route: 058
     Dates: start: 20180731, end: 20180731
  2. DARBEPOETIN ALFA [Suspect]
     Active Substance: DARBEPOETIN ALFA
     Dosage: 30 MILLIGRAM, Q2WK
     Route: 058
     Dates: start: 20180327, end: 20180424
  3. DARBEPOETIN ALFA [Suspect]
     Active Substance: DARBEPOETIN ALFA
     Dosage: 60 MILLIGRAM, Q2WK
     Route: 058
     Dates: start: 20180508, end: 20180605
  4. DARBEPOETIN ALFA [Suspect]
     Active Substance: DARBEPOETIN ALFA
     Dosage: 60 MILLIGRAM, Q2WK
     Route: 058
     Dates: start: 20180703, end: 20180717
  5. DARBEPOETIN ALFA [Suspect]
     Active Substance: DARBEPOETIN ALFA
     Dosage: 120 MILLIGRAM, Q2WK
     Route: 058
     Dates: start: 20180913, end: 20181106
  6. DARBEPOETIN ALFA [Suspect]
     Active Substance: DARBEPOETIN ALFA
     Dosage: 240 MILLIGRAM, Q2WK
     Route: 058
     Dates: start: 20181120, end: 20181204
  7. DARBEPOETIN ALFA [Suspect]
     Active Substance: DARBEPOETIN ALFA
     Dosage: 240 MILLIGRAM, Q2WK
     Route: 058
     Dates: start: 20181211, end: 20191224
  8. DARBEPOETIN ALFA [Suspect]
     Active Substance: DARBEPOETIN ALFA
     Dosage: 240 MILLIGRAM, QWK
     Route: 058
     Dates: start: 20200107
  9. SAMSCA [Concomitant]
     Active Substance: TOLVAPTAN
     Indication: Cardiac failure
     Dosage: 7.5 MILLIGRAM, QD, IMMEDIATELY AFTER BREAKFAST
     Route: 048
  10. FUROSEMIDE [Concomitant]
     Active Substance: FUROSEMIDE
     Indication: Cardiac failure
     Dosage: 40 MILLIGRAM, QD, IMMEDIATELY AFTER BREAKFAST
     Route: 048
  11. BISOPROLOL FUMARATE [Concomitant]
     Active Substance: BISOPROLOL FUMARATE
     Indication: Cardiac failure
     Dosage: 2.5 MILLIGRAM
     Route: 048
     Dates: end: 20180717
  12. VONOPRAZAN FUMARATE [Concomitant]
     Active Substance: VONOPRAZAN FUMARATE
     Indication: Myelodysplastic syndrome
     Dosage: 10 MILLIGRAM, QD, IMMEDIATELY AFTER DINNER
     Route: 048
  13. FEXOFENADINE HYDROCHLORIDE [Concomitant]
     Active Substance: FEXOFENADINE HYDROCHLORIDE
     Indication: Myelodysplastic syndrome
     Dosage: 60 MILLIGRAM
     Route: 048
  14. ROZEREM [Concomitant]
     Active Substance: RAMELTEON
     Dosage: 8 MILLIGRAM, QD, BEFORE BEDTIME
     Route: 048
  15. LEVOFLOXACIN HEMIHYDRATE [Concomitant]
     Active Substance: LEVOFLOXACIN
     Indication: Myelodysplastic syndrome
     Dosage: 250 MILLIGRAM
     Route: 048
     Dates: end: 20180329
  16. FOLIC ACID [Concomitant]
     Active Substance: FOLIC ACID
     Indication: Myelodysplastic syndrome
     Dosage: 5 MILLIGRAM
     Route: 048
     Dates: end: 20180604
  17. JADENU [Concomitant]
     Active Substance: DEFERASIROX
     Indication: Myelodysplastic syndrome
     Dosage: 540 MILLIGRAM
     Route: 048
  18. JADENU [Concomitant]
     Active Substance: DEFERASIROX
     Indication: Iron overload
     Dosage: 270 MILLIGRAM, QD, IMMEDIATELY AFTER DINNER
     Route: 048
  19. BONALON [Concomitant]
     Active Substance: ALENDRONATE SODIUM
     Dosage: 35 MILLIGRAM, QD, WHEN WAKING UP
     Route: 048
  20. WARFARIN POTASSIUM [Concomitant]
     Active Substance: WARFARIN POTASSIUM
     Indication: Cardiac failure
     Dosage: 1.5 MILLIGRAM
     Route: 048
     Dates: end: 20180326
  21. WARFARIN POTASSIUM [Concomitant]
     Active Substance: WARFARIN POTASSIUM
     Dosage: 2.5 MILLIGRAM
     Route: 048
     Dates: start: 20180625, end: 20180627
  22. WARFARIN POTASSIUM [Concomitant]
     Active Substance: WARFARIN POTASSIUM
     Dosage: 3 MILLIGRAM
     Route: 048
     Dates: start: 20180627, end: 20180628
  23. WARFARIN POTASSIUM [Concomitant]
     Active Substance: WARFARIN POTASSIUM
     Dosage: 1.5 MILLIGRAM
     Route: 048
     Dates: start: 20180806, end: 20180917
  24. WARFARIN POTASSIUM [Concomitant]
     Active Substance: WARFARIN POTASSIUM
     Dosage: 2 MILLIGRAM
     Route: 048
     Dates: start: 20190620, end: 20190621
  25. WARFARIN POTASSIUM [Concomitant]
     Active Substance: WARFARIN POTASSIUM
     Dosage: 3 MILLIGRAM
     Route: 048
     Dates: start: 20190622, end: 20190624
  26. WARFARIN POTASSIUM [Concomitant]
     Active Substance: WARFARIN POTASSIUM
     Dosage: 2 MILLIGRAM
     Route: 048
     Dates: start: 20190628, end: 20190806
  27. RIFADIN [Concomitant]
     Active Substance: RIFAMPIN
     Indication: Cardiac failure
     Dosage: 450 MILLIGRAM
     Route: 048
     Dates: start: 20180605, end: 20180615
  28. LOXOPROFEN SODIUM [Concomitant]
     Active Substance: LOXOPROFEN SODIUM
     Indication: Cardiac failure
     Dosage: 60 MILLIGRAM
     Route: 048
     Dates: start: 20180702, end: 20180702
  29. MINOCYCLINE HYDROCHLORIDE [Concomitant]
     Active Substance: MINOCYCLINE HYDROCHLORIDE
     Indication: Cardiac failure
     Dosage: 100 MILLIGRAM, BID, IMMEDIATELY AFTER BREAKFAST AND DINNER
     Route: 048
     Dates: start: 20180820
  30. CARVEDILOL [Concomitant]
     Active Substance: CARVEDILOL
     Indication: Cardiac failure
     Dosage: 2.5 MILLIGRAM, QD, IMMEDIATELY AFTER BREAKFAST
     Route: 048
     Dates: start: 20180717
  31. FEBUXOSTAT [Concomitant]
     Active Substance: FEBUXOSTAT
     Dosage: 20 MILLIGRAM, QD, IMMEDIATELY AFTER BREAKFAST
     Route: 048
     Dates: start: 20190410
  32. EPLERENONE [Concomitant]
     Active Substance: EPLERENONE
     Indication: Cardiac failure
     Dosage: 50 MILLIGRAM, QD, IMMEDIATELY AFTER BREAKFAST
     Route: 048
     Dates: start: 20190620
  33. BISOPROLOL [Concomitant]
     Active Substance: BISOPROLOL
     Indication: Cardiac failure
     Dosage: 2 MILLIGRAM
     Dates: start: 20190627, end: 20190628
  34. BISOPROLOL [Concomitant]
     Active Substance: BISOPROLOL
     Dosage: 2.5 MILLIGRAM
     Route: 048
     Dates: end: 20180717
  35. CALONAL [Concomitant]
     Active Substance: ACETAMINOPHEN
     Dosage: 600 MILLIGRAM, QID, IMMEDIATELY AFTER EACH MEAL, BEFORE BEDTIME
     Route: 048
     Dates: start: 20181009
  36. CYMBALTA [Concomitant]
     Active Substance: DULOXETINE HYDROCHLORIDE
     Indication: Spinal compression fracture
     Dosage: 40 MILLIGRAM, QD, IMMEDIATELY AFTER BREAKFAST
     Route: 048
  37. CYMBALTA [Concomitant]
     Active Substance: DULOXETINE HYDROCHLORIDE
     Indication: Spinal compression fracture
  38. DOMPERIDONE [Concomitant]
     Active Substance: DOMPERIDONE
     Indication: Spinal compression fracture
     Dosage: 10 MILLIGRAM, QD, IMMEDIATELY AFTER BREAKFAST
     Route: 048
  39. DOMPERIDONE [Concomitant]
     Active Substance: DOMPERIDONE
     Indication: Spinal compression fracture
  40. CELECOXIB [Concomitant]
     Active Substance: CELECOXIB
     Indication: Spinal compression fracture
     Dosage: 100 MILLIGRAM, QD, IMMEDIATELY AFTER LUNCH
     Route: 048

REACTIONS (3)
  - Spinal compression fracture [Not Recovered/Not Resolved]
  - Spinal compression fracture [Not Recovered/Not Resolved]
  - Iron overload [Not Recovered/Not Resolved]

NARRATIVE: CASE EVENT DATE: 20180901
